FAERS Safety Report 9236113 (Version 1)
Quarter: 2013Q2

REPORT INFORMATION
  Report Type: Spontaneous
  Country: US (occurrence: US)
  Receive Date: 20130417
  Receipt Date: 20130417
  Transmission Date: 20140414
  Serious: Yes (Hospitalization, Other)
  Sender: FDA-Public Use
  Company Number: US-AMGEN-USASP2013025409

PATIENT
  Age: 43 Year
  Sex: Female

DRUGS (1)
  1. ENBREL [Suspect]
     Indication: PSORIATIC ARTHROPATHY
     Dosage: 50 MG, QWK
     Dates: start: 20130120, end: 20130310

REACTIONS (3)
  - Uterine leiomyoma [Recovered/Resolved]
  - Post procedural haemorrhage [Recovered/Resolved]
  - Rheumatoid arthritis [Not Recovered/Not Resolved]
